FAERS Safety Report 23187402 (Version 2)
Quarter: 2023Q4

REPORT INFORMATION
  Report Type: Spontaneous
  Country: FR (occurrence: FR)
  Receive Date: 20231115
  Receipt Date: 20231202
  Transmission Date: 20240109
  Serious: Yes (Death, Hospitalization)
  Sender: FDA-Public Use
  Company Number: FR-AMGEN-FRASP2023202482

PATIENT
  Age: 70 Year
  Sex: Female
  Weight: 50 kg

DRUGS (9)
  1. LUMAKRAS [Suspect]
     Active Substance: SOTORASIB
     Indication: Product used for unknown indication
     Dosage: 720 MILLIGRAM, QD (120 MG 6 PER DAY)
     Route: 048
     Dates: end: 20231006
  2. ELIQUIS [Concomitant]
     Active Substance: APIXABAN
     Dosage: 2.5, BID
  3. BISOPROLOL FUMARATE [Concomitant]
     Active Substance: BISOPROLOL FUMARATE
     Dosage: 2.5 MILLIGRAM, QD (1 IN THE EVENING)
  4. FUROSEMIDE [Concomitant]
     Active Substance: FUROSEMIDE
     Dosage: 20, 1/2 IN THE MORNING
  5. ALDACTONE [Concomitant]
     Active Substance: SPIRONOLACTONE
     Dosage: 1/2 IN THE MORNING
  6. ENTRESTO [Concomitant]
     Active Substance: SACUBITRIL\VALSARTAN
     Dosage: 24 MILLIGRAM
  7. DAFALGAN [Concomitant]
     Active Substance: ACETAMINOPHEN
  8. CHOLECALCIFEROL [Concomitant]
     Active Substance: CHOLECALCIFEROL
  9. PAROXETINE HYDROCHLORIDE [Concomitant]
     Active Substance: PAROXETINE HYDROCHLORIDE\PAROXETINE HYDROCHLORIDE ANHYDROUS

REACTIONS (4)
  - Disease progression [Fatal]
  - Cognitive disorder [Unknown]
  - Vomiting [Unknown]
  - Off label use [Unknown]

NARRATIVE: CASE EVENT DATE: 20231002
